FAERS Safety Report 12760961 (Version 5)
Quarter: 2016Q4

REPORT INFORMATION
  Report Type: Report from Study
  Country: JP (occurrence: JP)
  Receive Date: 20160919
  Receipt Date: 20161121
  Transmission Date: 20170207
  Serious: Yes (Death)
  Sender: FDA-Public Use
  Company Number: JP-ASTRAZENECA-2016SE87649

PATIENT
  Age: 85 Year
  Sex: Female
  Weight: 37 kg

DRUGS (28)
  1. FEBURIC [Concomitant]
     Active Substance: FEBUXOSTAT
     Indication: HYPERURICAEMIA
     Route: 048
     Dates: end: 20160809
  2. DICLOFENAC NA [Concomitant]
     Active Substance: DICLOFENAC SODIUM
     Indication: BACK PAIN
     Route: 048
     Dates: end: 20160809
  3. TULOBUTEROL:TAPE HMT [Concomitant]
     Indication: BRONCHITIS CHRONIC
     Route: 048
     Dates: end: 20160809
  4. NIFEDIPINE CR [Concomitant]
     Active Substance: NIFEDIPINE
     Indication: HYPERTENSION
     Route: 048
     Dates: end: 20160817
  5. BISOLVON [Concomitant]
     Active Substance: BROMHEXINE HYDROCHLORIDE
     Indication: BRONCHITIS CHRONIC
     Route: 048
     Dates: end: 20160809
  6. BELSOMRA [Concomitant]
     Active Substance: SUVOREXANT
     Indication: INSOMNIA
     Route: 048
     Dates: end: 20160809
  7. NAPAGELN:LOTION [Concomitant]
     Indication: BACK PAIN
     Route: 048
     Dates: end: 20160809
  8. BFLUID [Concomitant]
     Active Substance: AMINO ACIDS\DEXTROSE\ELECTROLYTES NOS\VITAMINS
     Indication: NUTRITIONAL SUPPLEMENTATION
     Route: 065
  9. CLOTIAZEPAM [Concomitant]
     Active Substance: CLOTIAZEPAM
     Indication: ANXIETY
     Route: 048
     Dates: end: 20160830
  10. ZINC OXIDE. [Concomitant]
     Active Substance: ZINC OXIDE
     Indication: SKIN DISORDER
     Dosage: AS NEEDED
     Route: 003
     Dates: start: 20160608, end: 20160914
  11. ACINON [Concomitant]
     Active Substance: NIZATIDINE
     Indication: GASTROOESOPHAGEAL REFLUX DISEASE
     Route: 048
     Dates: end: 20160809
  12. NIFEDIPINE CR [Concomitant]
     Active Substance: NIFEDIPINE
     Indication: HYPERTENSION
     Route: 048
     Dates: end: 20160817
  13. TAGRISSO [Suspect]
     Active Substance: OSIMERTINIB
     Indication: NON-SMALL CELL LUNG CANCER
     Route: 048
     Dates: start: 20160608, end: 20160804
  14. LIMAPROST ALFADEX [Concomitant]
     Active Substance: LIMAPROST
     Indication: PERIPHERAL ARTERIAL OCCLUSIVE DISEASE
     Dosage: 5.0UG UNKNOWN
     Route: 048
     Dates: end: 20160809
  15. CELECOX [Concomitant]
     Active Substance: CELECOXIB
     Indication: INTERCOSTAL NEURALGIA
     Route: 048
     Dates: end: 20160809
  16. LOCOID [Concomitant]
     Active Substance: HYDROCORTISONE BUTYRATE
     Indication: SKIN DISORDER
     Dosage: 5.0G AS REQUIRED
     Route: 003
     Dates: start: 20160608, end: 20160814
  17. CALCITRIOL. [Concomitant]
     Active Substance: CALCITRIOL
     Indication: OSTEOPOROSIS
     Route: 048
     Dates: end: 20160809
  18. LANSOPRAZOLE OD [Concomitant]
     Active Substance: LANSOPRAZOLE
     Indication: GASTRITIS PROPHYLAXIS
     Route: 048
     Dates: end: 20160912
  19. HIRUDOID [Concomitant]
     Active Substance: GLYCOSAMINOGLYCANS
     Indication: SKIN DISORDER
     Dosage: 25.0G AS REQUIRED
     Route: 003
     Dates: start: 20160608, end: 20160814
  20. MYSER [Concomitant]
     Active Substance: DIFLUPREDNATE
     Indication: SKIN DISORDER
     Dosage: AS NEEDED
     Route: 003
     Dates: start: 20160608, end: 20160814
  21. KETOPROFEN. [Concomitant]
     Active Substance: KETOPROFEN
     Dosage: AS NEEDED
     Route: 062
  22. HANGEKOBOKUTO [Concomitant]
     Indication: OROPHARYNGEAL DISCOMFORT
     Route: 048
     Dates: end: 20160809
  23. REZALTAS [Concomitant]
     Active Substance: AZELNIDIPINE\OLMESARTAN MEDOXOMIL
     Indication: HYPERTENSION
     Route: 048
     Dates: end: 20160817
  24. LEVOFLOXACIN HEMIHYDRATE [Concomitant]
     Active Substance: LEVOFLOXACIN
     Indication: PNEUMONIA
     Dosage: 500.0MG AS REQUIRED
     Route: 048
     Dates: start: 20160622, end: 20160626
  25. TSUMURA RIKKUNSHITO EXTRACT GRANULES FOR ETHICAL USE [Concomitant]
     Active Substance: HERBALS
     Indication: DECREASED APPETITE
     Dosage: 7.5G UNKNOWN
     Route: 048
     Dates: start: 20160727, end: 20160809
  26. KYORIN-AP [Concomitant]
     Indication: PERIPHERAL ARTERIAL OCCLUSIVE DISEASE
     Route: 048
     Dates: end: 20160809
  27. AMLODIPINE [Concomitant]
     Active Substance: AMLODIPINE BESYLATE
     Indication: HYPERTENSION
     Route: 048
     Dates: end: 20160809
  28. MOHRUS TAPE [Concomitant]
     Active Substance: KETOPROFEN
     Indication: BACK PAIN
     Route: 062
     Dates: end: 20160809

REACTIONS (2)
  - Interstitial lung disease [Fatal]
  - Stomatitis [Not Recovered/Not Resolved]

NARRATIVE: CASE EVENT DATE: 20160707
